FAERS Safety Report 5839334-2 (Version None)
Quarter: 2008Q3

REPORT INFORMATION
  Report Type: 
  Country: None (occurrence: None)
  Receive Date: 20080808
  Receipt Date: 20080730
  Transmission Date: 20090109
  Serious: Yes (Hospitalization)
  Sender: FDA-Public Use
  Company Number: FR-PFIZER INC-2008064201

PATIENT
  Sex: Male

DRUGS (13)
  1. TAHOR [Suspect]
     Route: 048
  2. PREVISCAN [Interacting]
     Dosage: TEXT:1.25 DF DAILY EVERY DAY TDD:1.25 DF
     Route: 048
  3. MEMANTINE HCL [Interacting]
     Dosage: TEXT:0.5 DF BID EVERY DAY TDD:1 DF
     Route: 048
  4. CASODEX [Interacting]
     Dosage: TEXT:1 DF DAILY EVERY DAY TDD:1 DF
     Route: 048
  5. AMLOR [Concomitant]
     Route: 048
  6. TRIMEBUTINE MALEATE [Concomitant]
     Route: 048
  7. EQUANIL [Concomitant]
     Route: 048
  8. CORVASAL [Concomitant]
     Route: 048
  9. BISOPROLOL FUMARATE [Concomitant]
     Route: 048
  10. LANTUS [Concomitant]
     Dosage: DAILY DOSE:12I.U.
     Route: 058
  11. KAYEXALATE [Concomitant]
     Dosage: TEXT:1 TABLESPOON DAILY
     Route: 048
  12. FUMAFER [Concomitant]
     Route: 048
  13. LEUPROLIDE ACETATE [Concomitant]
     Route: 058

REACTIONS (2)
  - DRUG INTERACTION [None]
  - RECTAL HAEMORRHAGE [None]
